FAERS Safety Report 7061484-6 (Version None)
Quarter: 2010Q4

REPORT INFORMATION
  Report Type: 
  Country: None (occurrence: None)
  Receive Date: 20101026
  Receipt Date: 20101014
  Transmission Date: 20110411
  Serious: Yes (Death, Hospitalization)
  Sender: FDA-Public Use
  Company Number: AU-ACTELION-A-CH2010-40667

PATIENT
  Sex: Male
  Weight: 74.6 kg

DRUGS (11)
  1. TRACLEER [Suspect]
     Indication: PULMONARY ARTERIAL HYPERTENSION
     Dosage: 62.5 MG, BID
     Route: 048
     Dates: start: 20060928
  2. TRACLEER [Suspect]
     Dosage: UNK MG, UNK
     Route: 048
  3. TRACLEER [Suspect]
     Dosage: 62.5 MG, BID
     Route: 048
     Dates: end: 20100809
  4. FRUSEMIDE [Concomitant]
  5. SPIRONOLACTONE [Concomitant]
  6. HYDROCHLOROTHIAZIDE [Concomitant]
  7. PREDNISOLONE [Concomitant]
  8. TIOTROPIUM [Concomitant]
  9. ESOMEPRAZOLE [Concomitant]
  10. FERO-GRADUMET [Concomitant]
  11. ALLOPURINOL [Concomitant]

REACTIONS (5)
  - ANAEMIA [None]
  - BLOOD ALKALINE PHOSPHATASE INCREASED [None]
  - BLOOD BILIRUBIN INCREASED [None]
  - CELLULITIS [None]
  - RENAL FAILURE ACUTE [None]
